FAERS Safety Report 21190825 (Version 1)
Quarter: 2022Q3

REPORT INFORMATION
  Report Type: Spontaneous
  Country: US (occurrence: US)
  Receive Date: 20220809
  Receipt Date: 20220809
  Transmission Date: 20221026
  Serious: Yes (Other)
  Sender: FDA-Public Use
  Company Number: US-MYLANLABS-2022M1084799

PATIENT
  Sex: Female

DRUGS (16)
  1. PACLITAXEL [Suspect]
     Active Substance: PACLITAXEL
     Indication: Invasive ductal breast carcinoma
     Dosage: UNK, AS FIRST LINE THERAPY; ALONG WITH ??
     Route: 065
  2. TRASTUZUMAB [Suspect]
     Active Substance: TRASTUZUMAB
     Indication: Invasive ductal breast carcinoma
     Dosage: AS FIRST-LINE THERAPY, ALONG WITH PACLITAXEL AND PERTUZUMAB
     Route: 065
  3. TRASTUZUMAB [Suspect]
     Active Substance: TRASTUZUMAB
     Dosage: UNK,  LATER, WITH CAPECITABINE, NERATINIB AND BEVACIZUMAB
     Route: 065
  4. PERTUZUMAB [Suspect]
     Active Substance: PERTUZUMAB
     Indication: Invasive ductal breast carcinoma
     Dosage: UNK AS FIRST-LINE THERAPY, ALONG WITH PACLITAXEL AND TRASTUZUMAB
     Route: 065
  5. TUCATINIB [Suspect]
     Active Substance: TUCATINIB
     Indication: Invasive ductal breast carcinoma
     Dosage: UNK, ALONG WITH CAPECITABINE, TRASTUZUMAB AND BEVACIZUMAB
     Route: 065
  6. TUCATINIB [Suspect]
     Active Substance: TUCATINIB
     Indication: Breast cancer metastatic
  7. BEVACIZUMAB [Suspect]
     Active Substance: BEVACIZUMAB
     Indication: Invasive ductal breast carcinoma
     Dosage: UNK
     Route: 065
  8. BEVACIZUMAB [Suspect]
     Active Substance: BEVACIZUMAB
     Indication: Breast cancer metastatic
  9. TUCATINIB [Suspect]
     Active Substance: TUCATINIB
     Indication: Invasive ductal breast carcinoma
     Dosage: UNK
     Route: 065
  10. TUCATINIB [Suspect]
     Active Substance: TUCATINIB
     Indication: Breast cancer metastatic
  11. CAPECITABINE [Suspect]
     Active Substance: CAPECITABINE
     Indication: Invasive ductal breast carcinoma
     Dosage: UNK
     Route: 065
  12. CAPECITABINE [Suspect]
     Active Substance: CAPECITABINE
     Indication: Breast cancer metastatic
  13. TRASTUZUMAB DERUXTECAN [Suspect]
     Active Substance: TRASTUZUMAB DERUXTECAN
     Indication: Invasive ductal breast carcinoma
     Dosage: UNK
     Route: 065
  14. TRASTUZUMAB DERUXTECAN [Suspect]
     Active Substance: TRASTUZUMAB DERUXTECAN
     Indication: Breast cancer metastatic
  15. T DM1 [Concomitant]
     Indication: Invasive ductal breast carcinoma
     Dosage: UNK, SECOND-LINE OF THERAPY
     Route: 065
  16. T DM1 [Concomitant]
     Indication: Breast cancer metastatic

REACTIONS (3)
  - Drug ineffective [Unknown]
  - Pneumonitis [Recovering/Resolving]
  - Pulmonary toxicity [Unknown]
